FAERS Safety Report 17367044 (Version 2)
Quarter: 2020Q1

REPORT INFORMATION
  Report Type: Spontaneous
  Country: DE (occurrence: DE)
  Receive Date: 20200204
  Receipt Date: 20200210
  Transmission Date: 20200409
  Serious: Yes (Life-Threatening, Hospitalization, Other)
  Sender: FDA-Public Use
  Company Number: DE-009507513-1911DEU004250

PATIENT
  Age: 47 Year
  Sex: Male
  Weight: 75 kg

DRUGS (5)
  1. PEMETREXED DISODIUM [Suspect]
     Active Substance: PEMETREXED DISODIUM
     Indication: LUNG ADENOCARCINOMA STAGE IV
     Dosage: 1060MG IN TOTAL (497.65 MG/M2)
     Route: 042
  2. KEYTRUDA [Suspect]
     Active Substance: PEMBROLIZUMAB
     Dosage: 200 MILLIGRAM, Q3W
     Dates: start: 20190926, end: 20190926
  3. CISPLATIN. [Suspect]
     Active Substance: CISPLATIN
     Indication: LUNG ADENOCARCINOMA STAGE IV
     Dosage: 160MG IN TOTAL (75.12 MG/M2)
     Route: 042
  4. KEYTRUDA [Suspect]
     Active Substance: PEMBROLIZUMAB
     Dosage: 200 MILLIGRAM, Q3W
     Route: 042
     Dates: start: 20190906, end: 20190906
  5. KEYTRUDA [Suspect]
     Active Substance: PEMBROLIZUMAB
     Indication: LUNG ADENOCARCINOMA STAGE IV
     Dosage: 200 MILLIGRAM, Q3W
     Route: 042
     Dates: start: 20190812, end: 20190812

REACTIONS (7)
  - Acute kidney injury [Recovering/Resolving]
  - Colitis [Recovering/Resolving]
  - Nephritis [Recovered/Resolved]
  - Mucosal inflammation [Recovering/Resolving]
  - Meningitis leptospiral [Unknown]
  - Meningitis aseptic [Recovering/Resolving]
  - Anaphylactic reaction [Unknown]

NARRATIVE: CASE EVENT DATE: 201909
